FAERS Safety Report 25478551 (Version 8)
Quarter: 2025Q4

REPORT INFORMATION
  Report Type: Report from Study
  Country: CA (occurrence: CA)
  Receive Date: 20250625
  Receipt Date: 20251118
  Transmission Date: 20260118
  Serious: Yes (Other)
  Sender: TAKEDA
  Company Number: CA-TAKEDA-2025TUS056691

PATIENT
  Age: 30 Year
  Sex: Male
  Weight: 77.5 kg

DRUGS (5)
  1. VEDOLIZUMAB [Suspect]
     Active Substance: VEDOLIZUMAB
     Indication: Crohn^s disease
     Dosage: 300 MILLIGRAM
  2. VEDOLIZUMAB [Suspect]
     Active Substance: VEDOLIZUMAB
     Indication: Colitis ulcerative
     Dosage: 300 MILLIGRAM, Q4WEEKS
     Dates: start: 20250618
  3. VEDOLIZUMAB [Suspect]
     Active Substance: VEDOLIZUMAB
     Dosage: 300 MILLIGRAM, Q4WEEKS
  4. VEDOLIZUMAB [Suspect]
     Active Substance: VEDOLIZUMAB
     Dosage: 300 MILLIGRAM, Q4WEEKS
     Dates: end: 20251006
  5. MESALAMINE [Concomitant]
     Active Substance: MESALAMINE
     Dosage: 800 MILLIGRAM

REACTIONS (7)
  - Crohn^s disease [Unknown]
  - Colitis ulcerative [Unknown]
  - Treatment failure [Recovering/Resolving]
  - Off label use [Unknown]
  - Haemoglobin decreased [Unknown]
  - Pallor [Unknown]
  - Fatigue [Unknown]

NARRATIVE: CASE EVENT DATE: 20250618
